FAERS Safety Report 18027993 (Version 1)
Quarter: 2020Q3

REPORT INFORMATION
  Report Type: Spontaneous
  Country: US (occurrence: US)
  Receive Date: 20200716
  Receipt Date: 20200716
  Transmission Date: 20201103
  Serious: No
  Sender: FDA-Public Use
  Company Number: US-AMGEN-USASP2020113213

PATIENT
  Age: 48 Year
  Sex: Female

DRUGS (2)
  1. VECTIBIX [Suspect]
     Active Substance: PANITUMUMAB
     Dosage: 700 MILLIGRAM, Q3WK
     Route: 065
  2. VECTIBIX [Suspect]
     Active Substance: PANITUMUMAB
     Indication: COLORECTAL CANCER
     Dosage: 700 MILLIGRAM, Q2WK
     Route: 065

REACTIONS (2)
  - Off label use [Unknown]
  - Platelet count abnormal [Not Recovered/Not Resolved]
